FAERS Safety Report 25172021 (Version 1)
Quarter: 2025Q2

REPORT INFORMATION
  Report Type: Spontaneous
  Country: US (occurrence: US)
  Receive Date: 20250408
  Receipt Date: 20250408
  Transmission Date: 20250717
  Serious: Yes (Life-Threatening, Other)
  Sender: RANBAXY
  Company Number: US-SUN PHARMACEUTICAL INDUSTRIES LTD-2025R1-501857

PATIENT
  Age: 78 Year
  Sex: Male

DRUGS (1)
  1. FLECAINIDE ACETATE [Suspect]
     Active Substance: FLECAINIDE ACETATE
     Indication: Atrial fibrillation
     Dosage: 100 MILLIGRAM, QD
     Route: 065

REACTIONS (6)
  - Hypoxia [Unknown]
  - Toxicity to various agents [Unknown]
  - Mental status changes [Unknown]
  - Hypotension [Unknown]
  - Tachycardia [Unknown]
  - Hypoxia [Unknown]
